FAERS Safety Report 23631292 (Version 1)
Quarter: 2024Q1

REPORT INFORMATION
  Report Type: Spontaneous
  Country: FR (occurrence: FR)
  Receive Date: 20240314
  Receipt Date: 20240314
  Transmission Date: 20240409
  Serious: Yes (Hospitalization)
  Sender: FDA-Public Use
  Company Number: None

PATIENT
  Age: 70 Year
  Sex: Female
  Weight: 37 kg

DRUGS (1)
  1. ENHERTU [Suspect]
     Active Substance: FAM-TRASTUZUMAB DERUXTECAN-NXKI
     Indication: HER2 positive breast cancer
     Dosage: 5.4 MG/KG, TOTAL
     Route: 042
     Dates: start: 20240206, end: 20240206

REACTIONS (7)
  - Blood phosphorus decreased [Recovered/Resolved]
  - Hypomagnesaemia [Recovered/Resolved]
  - Aplasia [Recovering/Resolving]
  - Muscle spasms [Recovered/Resolved]
  - Hypokalaemia [Recovering/Resolving]
  - Vomiting [Recovered/Resolved]
  - Dehydration [Recovered/Resolved]

NARRATIVE: CASE EVENT DATE: 20240212
